FAERS Safety Report 23804095 (Version 2)
Quarter: 2024Q2

REPORT INFORMATION
  Report Type: Report from Study
  Country: ES (occurrence: ES)
  Receive Date: 20240501
  Receipt Date: 20240501
  Transmission Date: 20240716
  Serious: Yes (Other)
  Sender: FDA-Public Use
  Company Number: ES-Merck Healthcare KGaA-2024009749

PATIENT
  Age: 59 Year
  Sex: Female
  Weight: 59 kg

DRUGS (3)
  1. TEPOTINIB [Suspect]
     Active Substance: TEPOTINIB
     Indication: Lung adenocarcinoma stage IV
     Route: 048
     Dates: start: 20220330, end: 20230306
  2. LEVETIRACETAM [Concomitant]
     Active Substance: LEVETIRACETAM
     Indication: Prophylaxis
     Route: 048
     Dates: start: 20240110
  3. LEVOTHYROXINE SODIUM [Concomitant]
     Active Substance: LEVOTHYROXINE SODIUM
     Indication: Primary hypothyroidism
     Route: 048
     Dates: start: 20191120

REACTIONS (2)
  - Lymphoedema [Recovered/Resolved with Sequelae]
  - Cancer surgery [Recovered/Resolved]

NARRATIVE: CASE EVENT DATE: 20230307
